FAERS Safety Report 12841147 (Version 1)
Quarter: 2016Q4

REPORT INFORMATION
  Report Type: Spontaneous
  Country: US (occurrence: US)
  Receive Date: 20161012
  Receipt Date: 20161012
  Transmission Date: 20170207
  Serious: Yes (Hospitalization, Other)
  Sender: FDA-Public Use
  Company Number: US-MYLANLABS-2016M1043620

PATIENT

DRUGS (2)
  1. RANITIDINE. [Concomitant]
     Active Substance: RANITIDINE
     Indication: PROPHYLAXIS
     Route: 065
  2. DEXAMETHASONE. [Suspect]
     Active Substance: DEXAMETHASONE
     Indication: MEDULLOBLASTOMA
     Dosage: 1.6 MG/KG/DAY
     Route: 042

REACTIONS (2)
  - Anaemia [Recovered/Resolved]
  - Peptic ulcer [Recovered/Resolved]
